FAERS Safety Report 5193647-9 (Version None)
Quarter: 2006Q4

REPORT INFORMATION
  Report Type: 
  Country: None (occurrence: None)
  Receive Date: 20061214
  Receipt Date: 20061129
  Transmission Date: 20070319
  Serious: Yes (Other)
  Sender: FDA-Public Use
  Company Number: 200610382BBE

PATIENT
  Age: 22 Year
  Sex: Male
  Weight: 74.8435 kg

DRUGS (3)
  1. KONYNE 80 [Suspect]
     Indication: FACTOR VIII DEFICIENCY
     Dosage: PRN
     Dates: start: 19820701, end: 19940601
  2. KONYNE [Suspect]
     Indication: FACTOR VIII DEFICIENCY
     Dosage: PRN
     Dates: start: 19820701, end: 19940601
  3. KONYNE-HT [Suspect]
     Indication: FACTOR VIII DEFICIENCY
     Dosage: PRN
     Dates: start: 19820701, end: 19940601

REACTIONS (5)
  - HEPATITIS C [None]
  - IATROGENIC INFECTION [None]
  - POOR QUALITY DRUG ADMINISTERED [None]
  - SYNOVECTOMY [None]
  - THERAPEUTIC PRODUCT CONTAMINATION [None]
